FAERS Safety Report 5638833-6 (Version None)
Quarter: 2008Q1

REPORT INFORMATION
  Report Type: 
  Country: None (occurrence: None)
  Receive Date: 20080226
  Receipt Date: 20080215
  Transmission Date: 20080703
  Serious: Yes (Hospitalization, Disabling, Other)
  Sender: FDA-Public Use
  Company Number: US-MERCK-0802USA02809

PATIENT
  Age: 64 Year
  Sex: Female
  Weight: 64 kg

DRUGS (4)
  1. FOSAMAX [Suspect]
     Indication: OSTEOPOROSIS
     Route: 048
     Dates: start: 20000101, end: 20080101
  2. CHOLECALCIFEROL [Concomitant]
     Route: 065
  3. ESTROGENS (UNSPECIFIED) [Concomitant]
     Route: 065
     Dates: start: 19940101, end: 20020701
  4. CENTRUM SILVER [Concomitant]
     Route: 065

REACTIONS (4)
  - BACK PAIN [None]
  - CHEST PAIN [None]
  - FALL [None]
  - FEMUR FRACTURE [None]
